FAERS Safety Report 6239461-4 (Version None)
Quarter: 2009Q2

REPORT INFORMATION
  Report Type: 
  Country: None (occurrence: None)
  Receive Date: 20090622
  Receipt Date: 20090610
  Transmission Date: 20091009
  Serious: Yes (Other)
  Sender: FDA-Public Use
  Company Number: DE-PFIZER INC-2009215592

PATIENT
  Age: 64 Year

DRUGS (10)
  1. LYRICA [Suspect]
     Dosage: 300 MG, 2X/DAY
     Route: 048
     Dates: end: 20090522
  2. LYRICA [Suspect]
     Dosage: 150 MG, 2X/DAY
     Route: 048
  3. ALLOPURINOL [Concomitant]
     Dosage: 300 MG, 1X/DAY
  4. RAMIPRIL/HYDROCHLOROTHIAZIDE [Concomitant]
     Dosage: 5/25
  5. METFORMIN [Concomitant]
     Dosage: 1000 MG, 2X/DAY
  6. SIMVASTATIN [Concomitant]
     Dosage: 20 MG, 1X/DAY
  7. MYDOCALM ^STRATHMANN^ [Concomitant]
     Dosage: UNK
  8. OMEPRAZOLE [Concomitant]
     Dosage: 40 MG, 1X/DAY
  9. TRANCOPAL DOLO [Concomitant]
     Dosage: UNK
  10. DICLO [Concomitant]
     Indication: PAIN
     Dosage: 75 MG, AS NEEDED

REACTIONS (2)
  - AGEUSIA [None]
  - FOOD AVERSION [None]
